FAERS Safety Report 5333500-0 (Version None)
Quarter: 2007Q2

REPORT INFORMATION
  Report Type: 
  Country: None (occurrence: None)
  Receive Date: 20070308
  Receipt Date: 20061117
  Transmission Date: 20071010
  Serious: No
  Sender: FDA-Public Use
  Company Number: 2006-BP-13643PF

PATIENT
  Sex: Male

DRUGS (3)
  1. SPIRIVA [Suspect]
     Dosage: (18 MCG)
  2. FORADIL [Suspect]
  3. ADVAIR DISKUS 100/50 [Suspect]

REACTIONS (3)
  - ALCOHOL POISONING [None]
  - DIZZINESS [None]
  - SENSATION OF BLOOD FLOW [None]
